FAERS Safety Report 12580880 (Version 5)
Quarter: 2020Q3

REPORT INFORMATION
  Report Type: Report from Study
  Country: CH (occurrence: CH)
  Receive Date: 20160721
  Receipt Date: 20160817
  Transmission Date: 20201104
  Serious: Yes (Hospitalization)
  Sender: FDA-Public Use
  Company Number: CH-JNJFOC-20160711631

PATIENT
  Age: 5 Decade
  Sex: Female
  Weight: 68 kg

DRUGS (12)
  1. DARATUMUMAB [Suspect]
     Active Substance: DARATUMUMAB
     Indication: PLASMA CELL MYELOMA
     Dosage: 16 MG/KG
     Route: 042
     Dates: start: 20160614
  2. DAFALGAN [Concomitant]
     Active Substance: ACETAMINOPHEN
     Route: 048
     Dates: start: 20160614, end: 20160722
  3. TAVEGYL [Concomitant]
     Active Substance: CLEMASTINE FUMARATE
     Route: 042
     Dates: start: 20160614, end: 20160722
  4. FENOSPEN [Concomitant]
     Indication: TRANSPLANT
     Route: 048
  5. BACTRIM [Concomitant]
     Active Substance: SULFAMETHOXAZOLE\TRIMETHOPRIM
     Indication: TRANSPLANT
     Route: 048
  6. ELTROXIN [Concomitant]
     Active Substance: LEVOTHYROXINE
     Indication: HYPOTHYROIDISM
     Route: 048
  7. ZOMETA [Concomitant]
     Active Substance: ZOLEDRONIC ACID
     Indication: OSTEOPOROSIS
     Route: 042
  8. VALTREX [Concomitant]
     Active Substance: VALACYCLOVIR HYDROCHLORIDE
     Indication: TRANSPLANT
     Route: 048
  9. DARATUMUMAB [Suspect]
     Active Substance: DARATUMUMAB
     Route: 042
  10. LEUCOVORIN. [Concomitant]
     Active Substance: LEUCOVORIN
     Indication: TRANSPLANT
     Route: 048
  11. PALLADONE [Concomitant]
     Active Substance: HYDROMORPHONE HYDROCHLORIDE
     Indication: PAIN
     Route: 048
  12. PREDNISONE. [Concomitant]
     Active Substance: PREDNISONE
     Route: 048
     Dates: start: 20160615, end: 20160722

REACTIONS (3)
  - Electrolyte imbalance [Recovering/Resolving]
  - Femur fracture [Unknown]
  - Pancreatitis [Recovering/Resolving]

NARRATIVE: CASE EVENT DATE: 20160712
